FAERS Safety Report 9878278 (Version 2)
Quarter: 2014Q1

REPORT INFORMATION
  Report Type: Spontaneous
  Country: DE (occurrence: FR)
  Receive Date: 20140206
  Receipt Date: 20140219
  Transmission Date: 20141002
  Serious: Yes (Hospitalization)
  Sender: FDA-Public Use
  Company Number: FR-FRI-1000053439

PATIENT
  Age: 92 Year
  Sex: Female

DRUGS (6)
  1. MEMANTINE [Suspect]
     Dosage: 1 DF
     Route: 048
     Dates: end: 20131113
  2. LYRICA [Suspect]
     Dosage: 2 DF
     Route: 048
     Dates: end: 20131113
  3. OMEPRAZOLE [Suspect]
     Route: 048
     Dates: end: 20131113
  4. MOTILIUM [Suspect]
     Dosage: 10 MG
     Route: 048
     Dates: end: 20131113
  5. ROCEPHINE [Concomitant]
     Indication: BRONCHOPNEUMOPATHY
  6. ESCITALOPRAM [Concomitant]
     Dosage: 30 MG

REACTIONS (3)
  - Encephalopathy [Recovered/Resolved]
  - Psychomotor skills impaired [Recovered/Resolved]
  - Myoclonus [Recovered/Resolved]
